FAERS Safety Report 18498328 (Version 1)
Quarter: 2020Q4

REPORT INFORMATION
  Report Type: Spontaneous
  Country: US (occurrence: US)
  Receive Date: 20201112
  Receipt Date: 20201112
  Transmission Date: 20210114
  Serious: No
  Sender: FDA-Public Use
  Company Number: US-NEXGEN PHARMA, INC.-2095883

PATIENT
  Age: 17 Year
  Sex: Male

DRUGS (1)
  1. CHENODAL [Suspect]
     Active Substance: CHENODIOL
     Indication: LIPIDOSIS
     Route: 048
     Dates: start: 20200529

REACTIONS (4)
  - Vomiting [Unknown]
  - Dizziness [Unknown]
  - Confusional state [None]
  - Nausea [Unknown]
